FAERS Safety Report 8786049 (Version 3)
Quarter: 2012Q4

REPORT INFORMATION
  Report Type: 
  Country: AU (occurrence: AU)
  Receive Date: 20120914
  Receipt Date: 20121011
  Transmission Date: 20130627
  Serious: Yes (Hospitalization)
  Sender: FDA-Public Use
  Company Number: AU-US-EMD SERONO, INC.-7160624

PATIENT
  Sex: Female

DRUGS (2)
  1. REBIF [Suspect]
     Indication: PRODUCT USED FOR UNKNOWN INDICATION
     Dates: start: 201109
  2. REBIF [Suspect]

REACTIONS (4)
  - Cellulitis [Unknown]
  - Infection [Unknown]
  - Injection site erythema [Unknown]
  - Drug dose omission [Unknown]
